FAERS Safety Report 20008474 (Version 1)
Quarter: 2021Q4

REPORT INFORMATION
  Report Type: Spontaneous
  Country: US (occurrence: US)
  Receive Date: 20211028
  Receipt Date: 20211028
  Transmission Date: 20220303
  Serious: Yes (Hospitalization)
  Sender: FDA-Public Use
  Company Number: US-SLATE RUN PHARMACEUTICALS-21US000739

PATIENT

DRUGS (6)
  1. DESVENLAFAXINE SUCCINATE [Suspect]
     Active Substance: DESVENLAFAXINE SUCCINATE
     Indication: Obsessive-compulsive disorder
     Dosage: TAPERED OFF
  2. DESVENLAFAXINE SUCCINATE [Suspect]
     Active Substance: DESVENLAFAXINE SUCCINATE
     Dosage: 50 MILLIGRAM, QD
  3. TOPIRAMATE [Suspect]
     Active Substance: TOPIRAMATE
     Indication: Tic
     Dosage: 25 MILLIGRAM, BID
  4. LURASIDONE [Suspect]
     Active Substance: LURASIDONE
     Indication: Tic
     Dosage: TAPERED OFF
  5. LURASIDONE [Suspect]
     Active Substance: LURASIDONE
     Dosage: 60 MILLIGRAM, QD
  6. GUANFACINE [Concomitant]
     Active Substance: GUANFACINE
     Indication: Impulse-control disorder
     Dosage: 1 MILLIGRAM, BID

REACTIONS (4)
  - Suicidal ideation [Recovered/Resolved]
  - Tic [Recovering/Resolving]
  - Drug ineffective [Recovered/Resolved]
  - Off label use [Recovered/Resolved]
